FAERS Safety Report 4594041-1 (Version None)
Quarter: 2005Q1

REPORT INFORMATION
  Report Type: 
  Country: None (occurrence: None)
  Receive Date: 20050218
  Receipt Date: 20050209
  Transmission Date: 20050727
  Serious: Yes (Other)
  Sender: FDA-Public Use
  Company Number: DE-YAMANOUCHI-YEHQ20050209

PATIENT
  Age: 76 Year
  Sex: Male

DRUGS (5)
  1. VESICUR [Suspect]
     Indication: HYPERTONIC BLADDER
     Dosage: 10 MG, PO
     Route: 048
     Dates: start: 20041223, end: 20050112
  2. CONVERSUM COMBI [Concomitant]
  3. AMLODIPINE [Concomitant]
  4. OMEPRAZOLE [Concomitant]
  5. GINKGO BILOBA EXTRACT [Concomitant]

REACTIONS (3)
  - CONFUSIONAL STATE [None]
  - DELUSION [None]
  - HALLUCINATION [None]
